FAERS Safety Report 18293117 (Version 1)
Quarter: 2020Q3

REPORT INFORMATION
  Report Type: Spontaneous
  Country: US (occurrence: US)
  Receive Date: 20200921
  Receipt Date: 20200921
  Transmission Date: 20201103
  Serious: Yes (Hospitalization)
  Sender: FDA-Public Use
  Company Number: None

PATIENT
  Age: 57 Year
  Sex: Female

DRUGS (5)
  1. CAPECITABINE. [Suspect]
     Active Substance: CAPECITABINE
     Indication: METASTASES TO LIVER
     Route: 048
     Dates: start: 20200424
  2. GABAPENTIN. [Concomitant]
     Active Substance: GABAPENTIN
  3. TRIAMCINOLON [Concomitant]
  4. FENTANYL. [Concomitant]
     Active Substance: FENTANYL
  5. LEVOTHYROXIN [Concomitant]
     Active Substance: LEVOTHYROXINE

REACTIONS (3)
  - Foot fracture [None]
  - Therapy interrupted [None]
  - Dry skin [None]

NARRATIVE: CASE EVENT DATE: 20200731
